FAERS Safety Report 5020831-7 (Version None)
Quarter: 2006Q2

REPORT INFORMATION
  Report Type: 
  Country: None (occurrence: None)
  Receive Date: 20060606
  Receipt Date: 20060606
  Transmission Date: 20061013
  Serious: Yes (Hospitalization)
  Sender: FDA-Public Use
  Company Number: None

PATIENT
  Sex: Male
  Weight: 136.5327 kg

DRUGS (10)
  1. AVELOX [Suspect]
     Indication: CELLULITIS
     Dosage: 400 MG PO DAILY
     Route: 048
  2. VANCOMYCIN [Suspect]
     Indication: DIABETIC FOOT
  3. NORVASC [Concomitant]
  4. CHLORTHALIDONE [Concomitant]
  5. GLUCOTROL [Concomitant]
  6. POTASSIUM CHLORIDE [Concomitant]
  7. ASPIRIN [Concomitant]
  8. ZETIA [Concomitant]
  9. DETROL [Concomitant]
  10. LIPITOR [Concomitant]

REACTIONS (7)
  - ASPARTATE AMINOTRANSFERASE INCREASED [None]
  - BLOOD ALKALINE PHOSPHATASE [None]
  - BLOOD ALKALINE PHOSPHATASE INCREASED [None]
  - LIVER FUNCTION TEST ABNORMAL [None]
  - PNEUMONITIS [None]
  - PRURITUS [None]
  - PYREXIA [None]
